FAERS Safety Report 9201651 (Version 2)
Quarter: 2013Q2

REPORT INFORMATION
  Report Type: Report from Study
  Country: JP (occurrence: JP)
  Receive Date: 20130401
  Receipt Date: 20130613
  Transmission Date: 20140414
  Serious: Yes (Other)
  Sender: FDA-Public Use
  Company Number: PHHY2013JP031003

PATIENT
  Age: 54 Year
  Sex: Female
  Weight: 54 kg

DRUGS (12)
  1. AFINITOR [Suspect]
     Indication: PANCREATIC NEUROENDOCRINE TUMOUR
     Dosage: 10 MG, DAILY
     Route: 048
     Dates: start: 20120515
  2. TAKEPRON [Concomitant]
     Dosage: 15 MG
     Route: 048
  3. MUCOSTA [Concomitant]
     Dosage: 300 MG
     Route: 048
  4. MAGMITT [Concomitant]
     Dosage: 990 MG
     Route: 048
  5. GASMOTIN [Concomitant]
     Dosage: 15 MG
     Route: 048
  6. NAIXAN [Concomitant]
     Dosage: 600 MG
     Route: 048
  7. AVAPRO [Concomitant]
     Dosage: 100 MG
     Route: 048
  8. FORSENID [Concomitant]
     Dosage: 24 MG
     Route: 048
  9. OXYCONTIN [Concomitant]
     Dosage: 15 MG, UNK
     Route: 048
  10. FERROUS FUMARATE [Concomitant]
     Dosage: 1 DF, UNK
     Route: 048
  11. SODIUM GUALENATE HYDRATE [Concomitant]
     Indication: PROPHYLAXIS
     Dosage: 15 ML
  12. NORVASC [Concomitant]

REACTIONS (13)
  - Gamma-glutamyltransferase increased [Unknown]
  - C-reactive protein increased [Unknown]
  - Hot flush [Recovered/Resolved]
  - Palpitations [Recovered/Resolved]
  - Gingivitis [Unknown]
  - Pneumonitis [Not Recovered/Not Resolved]
  - Blood lactate dehydrogenase increased [Unknown]
  - Blood alkaline phosphatase increased [Unknown]
  - Stomatitis [Recovered/Resolved]
  - Alanine aminotransferase increased [Unknown]
  - Blood triglycerides increased [Unknown]
  - Blood cholesterol increased [Unknown]
  - Aspartate aminotransferase increased [Unknown]
